FAERS Safety Report 7358288-3 (Version None)
Quarter: 2011Q1

REPORT INFORMATION
  Report Type: 
  Country: None (occurrence: None)
  Receive Date: 20110317
  Receipt Date: 20110307
  Transmission Date: 20110831
  Serious: Yes (Death, Hospitalization, Other)
  Sender: FDA-Public Use
  Company Number: CO-GENZYME-POMP-1001345

PATIENT

DRUGS (1)
  1. MYOZYME [Suspect]
     Indication: GLYCOGEN STORAGE DISEASE TYPE II
     Dosage: 300 MG, Q2W
     Route: 042
     Dates: start: 20100926

REACTIONS (3)
  - RESPIRATORY DISORDER [None]
  - RESPIRATORY FAILURE [None]
  - INFLUENZA [None]
